FAERS Safety Report 14329424 (Version 1)
Quarter: 2017Q4

REPORT INFORMATION
  Report Type: Spontaneous
  Country: PT (occurrence: PT)
  Receive Date: 20171227
  Receipt Date: 20171227
  Transmission Date: 20180321
  Serious: Yes (Other)
  Sender: FDA-Public Use
  Company Number: PT-FRESENIUS KABI-FK201711404

PATIENT
  Age: 66 Year
  Sex: Male

DRUGS (2)
  1. ROPIVACAINE (MANUFACTURER UNKNOWN) [Suspect]
     Active Substance: ROPIVACAINE
     Indication: EPIDURAL ANAESTHESIA
     Route: 065
  2. OPIOID [Concomitant]
     Active Substance: UNSPECIFIED INGREDIENT
     Indication: PRODUCT USED FOR UNKNOWN INDICATION

REACTIONS (2)
  - Paraparesis [Unknown]
  - Radiculopathy [Unknown]
